FAERS Safety Report 4776603-1 (Version None)
Quarter: 2005Q3

REPORT INFORMATION
  Report Type: 
  Country: None (occurrence: None)
  Receive Date: 20050915
  Receipt Date: 20050909
  Transmission Date: 20060218
  Serious: Yes (Other)
  Sender: FDA-Public Use
  Company Number: 217030

PATIENT
  Sex: Male
  Weight: 108 kg

DRUGS (6)
  1. MABTHERA(RITUXIMAB) CONC FOR SOLUTION FOR INFUSION [Suspect]
     Indication: CHRONIC LYMPHOCYTIC LEUKAEMIA
     Dates: start: 20040901, end: 20050301
  2. FLUDARABINIE (FLUDARABINE PHOSPHATE) [Suspect]
     Indication: CHRONIC LYMPHOCYTIC LEUKAEMIA
     Dates: start: 20040901, end: 20050301
  3. CYCLOPHOSPHAMIDE [Suspect]
     Indication: CHRONIC LYMPHOCYTIC LEUKAEMIA
     Dates: start: 20040901, end: 20050301
  4. COTRIM FORTE (SULFAMETHOXAZOLE, TRIMETHOPRIM) [Concomitant]
  5. FUROSEMIDE [Concomitant]
  6. ESIDRIX [Concomitant]

REACTIONS (7)
  - BONE MARROW DEPRESSION [None]
  - BONE MARROW TOXICITY [None]
  - HEPATIC STEATOSIS [None]
  - HYPERHIDROSIS [None]
  - SPLEEN DISORDER [None]
  - SPLENOMEGALY [None]
  - VIRAL INFECTION [None]
